FAERS Safety Report 9998922 (Version 2)
Quarter: 2014Q1

REPORT INFORMATION
  Report Type: Spontaneous
  Country: US (occurrence: US)
  Receive Date: 20140312
  Receipt Date: 20140321
  Transmission Date: 20141002
  Serious: Yes (Other)
  Sender: FDA-Public Use
  Company Number: US-009507513-1403USA002398

PATIENT
  Age: 48 Year
  Sex: Female

DRUGS (1)
  1. NASONEX [Suspect]
     Dosage: UNK
     Route: 045
     Dates: start: 2006, end: 2013

REACTIONS (5)
  - Cataract operation [Recovered/Resolved]
  - Cataract operation [Recovered/Resolved]
  - Cataract nuclear [Recovered/Resolved]
  - Intraocular lens implant [Recovered/Resolved]
  - Intraocular lens implant [Recovered/Resolved]
